FAERS Safety Report 19822127 (Version 1)
Quarter: 2021Q3

REPORT INFORMATION
  Report Type: Spontaneous
  Country: US (occurrence: US)
  Receive Date: 20210909
  Receipt Date: 20210909
  Transmission Date: 20211014
  Serious: Yes (Hospitalization)
  Sender: FDA-Public Use
  Company Number: None

PATIENT
  Age: 87 Year
  Sex: Male

DRUGS (1)
  1. ABIRATERONE TAB 250MG [Suspect]
     Active Substance: ABIRATERONE
     Route: 048
     Dates: start: 2020

REACTIONS (5)
  - Constipation [None]
  - Diarrhoea [None]
  - Blood pressure decreased [None]
  - Ulcer [None]
  - Pneumonia [None]

NARRATIVE: CASE EVENT DATE: 20210805
